FAERS Safety Report 25759807 (Version 1)
Quarter: 2025Q3

REPORT INFORMATION
  Report Type: Spontaneous
  Country: SG (occurrence: SG)
  Receive Date: 20250904
  Receipt Date: 20250904
  Transmission Date: 20251021
  Serious: Yes (Other)
  Sender: TAKEDA
  Company Number: SG-LUNDBECK-DKLU4018633

PATIENT
  Age: 26 Year
  Sex: Female

DRUGS (1)
  1. VORTIOXETINE [Suspect]
     Active Substance: VORTIOXETINE
     Indication: Product used for unknown indication

REACTIONS (2)
  - Rash erythematous [Unknown]
  - Rash [Unknown]

NARRATIVE: CASE EVENT DATE: 20250704
